FAERS Safety Report 23913733 (Version 1)
Quarter: 2024Q2

REPORT INFORMATION
  Report Type: Spontaneous
  Country: SK (occurrence: SK)
  Receive Date: 20240529
  Receipt Date: 20240529
  Transmission Date: 20240716
  Serious: Yes (Life-Threatening, Other)
  Sender: FDA-Public Use
  Company Number: None

PATIENT

DRUGS (1)
  1. LAMOTRIGINE [Suspect]
     Active Substance: LAMOTRIGINE
     Indication: Product used for unknown indication
     Dosage: 850 MG, QD
     Route: 063

REACTIONS (3)
  - Apnoeic attack [Recovered/Resolved]
  - Cyanosis [Recovered/Resolved]
  - Exposure via breast milk [Recovered/Resolved]
